FAERS Safety Report 23701644 (Version 1)
Quarter: 2024Q2

REPORT INFORMATION
  Report Type: Spontaneous
  Country: IT (occurrence: None)
  Receive Date: 20240403
  Receipt Date: 20240403
  Transmission Date: 20240716
  Serious: Yes (Death)
  Sender: FDA-Public Use
  Company Number: 2024A079083

PATIENT
  Sex: Male

DRUGS (1)
  1. SYMBICORT [Suspect]
     Active Substance: BUDESONIDE\FORMOTEROL FUMARATE DIHYDRATE
     Indication: Product used for unknown indication
     Dosage: 160\4\5 MG,UNKNOWN UNKNOWN
     Route: 055
     Dates: start: 20240327

REACTIONS (1)
  - Death [Fatal]

NARRATIVE: CASE EVENT DATE: 20240328
